FAERS Safety Report 4464886-7 (Version None)
Quarter: 2004Q4

REPORT INFORMATION
  Report Type: 
  Country: None (occurrence: None)
  Receive Date: 20041004
  Receipt Date: 20040114
  Transmission Date: 20050328
  Serious: Yes (Hospitalization)
  Sender: FDA-Public Use
  Company Number: 356262

PATIENT

DRUGS (2)
  1. COREG [Suspect]
     Indication: ILL-DEFINED DISORDER
     Route: 048
  2. PRAVACHOL [Concomitant]

REACTIONS (1)
  - THROMBOCYTOPENIA [None]
